FAERS Safety Report 7443429-X (Version None)
Quarter: 2011Q2

REPORT INFORMATION
  Report Type: 
  Country: None (occurrence: None)
  Receive Date: 20110428
  Receipt Date: 20110411
  Transmission Date: 20111010
  Serious: No
  Sender: FDA-Public Use
  Company Number: US-B.I. PHARMACEUTICALS,INC./RIDGEFIELD-2011-BP-10502BP

PATIENT
  Sex: Female

DRUGS (11)
  1. INDAPAMIDE [Concomitant]
     Indication: FLUID RETENTION
     Dosage: 2.5 MG
     Route: 048
  2. EFFEXOR XR [Concomitant]
     Indication: HERPES ZOSTER
     Dosage: 150 MG
     Route: 048
  3. VIT D [Concomitant]
     Indication: VITAMIN D DEFICIENCY
     Route: 048
  4. THYROXINE [Concomitant]
     Indication: HYPOTHYROIDISM
     Dosage: 37.5 MG
     Route: 048
  5. SPIRIVA [Suspect]
     Indication: DYSPNOEA
     Dosage: 18 MCG
     Route: 055
     Dates: start: 20110307
  6. ZOCOR [Concomitant]
     Indication: BLOOD CHOLESTEROL INCREASED
     Dosage: 40 MG
     Route: 048
  7. ACCUPRIL [Concomitant]
     Indication: HYPERTENSION
     Dosage: 40 MG
     Route: 048
  8. NABUMETONE [Concomitant]
     Indication: ARTHRITIS
     Dosage: 750 MG
     Route: 048
  9. KLONOPIN [Concomitant]
     Indication: RESTLESS LEGS SYNDROME
     Dosage: 1 MG
     Route: 048
  10. LEVOCIN [Concomitant]
     Indication: ABDOMINAL DISCOMFORT
     Dosage: 0.125 MG
     Route: 048
  11. SKELAXIN [Concomitant]
     Indication: SPINAL COLUMN STENOSIS
     Dosage: 800 MG
     Route: 048

REACTIONS (5)
  - GLOSSODYNIA [None]
  - TONGUE DISCOLOURATION [None]
  - OROPHARYNGEAL PAIN [None]
  - SWOLLEN TONGUE [None]
  - TONGUE BLISTERING [None]
